FAERS Safety Report 15525680 (Version 2)
Quarter: 2018Q4

REPORT INFORMATION
  Report Type: Spontaneous
  Country: DE (occurrence: DE)
  Receive Date: 20181019
  Receipt Date: 20181129
  Transmission Date: 20190205
  Serious: Yes (Hospitalization, Disabling)
  Sender: FDA-Public Use
  Company Number: DE-BAUSCH-BL-2018-028421

PATIENT
  Age: 58 Year
  Sex: Female

DRUGS (12)
  1. METAMIZOLE [Concomitant]
     Active Substance: METAMIZOLE
     Indication: PSORIATIC ARTHROPATHY
     Route: 048
     Dates: start: 201803
  2. ENALAPRIL [Concomitant]
     Active Substance: ENALAPRIL
     Indication: HYPERTENSION
     Route: 048
     Dates: start: 2005
  3. AIN457 [Suspect]
     Active Substance: SECUKINUMAB
     Dosage: 150 MG, BID, QW (ONCE WEEKLY)
     Route: 058
     Dates: start: 20180828
  4. DOXAZOSIN [Concomitant]
     Active Substance: DOXAZOSIN\DOXAZOSIN MESYLATE
     Indication: HYPERTENSION
     Dosage: 4 MG, Q24H
     Route: 048
     Dates: start: 20180910
  5. SPIRONOLACTON [Concomitant]
     Active Substance: SPIRONOLACTONE
     Indication: HYPERTENSION
     Dosage: 50 MG, Q24H
     Route: 048
     Dates: start: 20180910
  6. PREDNISOLONE. [Suspect]
     Active Substance: PREDNISOLONE
     Indication: PSORIASIS
     Dosage: 10 MG, Q24H
     Route: 048
     Dates: start: 20180904
  7. HCT [Concomitant]
     Active Substance: HYDROCHLOROTHIAZIDE
     Indication: HYPERTENSION
     Route: 048
     Dates: start: 20180910
  8. METFORMIN [Concomitant]
     Active Substance: METFORMIN HYDROCHLORIDE
     Indication: DIABETES MELLITUS
     Route: 048
     Dates: start: 201702
  9. AIN457 [Suspect]
     Active Substance: SECUKINUMAB
     Indication: PSORIASIS
     Dosage: 150 MG, BID, QW (ONCE WEEKLY)
     Route: 058
     Dates: start: 20180821
  10. AMLODIPINE [Concomitant]
     Active Substance: AMLODIPINE BESYLATE
     Indication: HYPERTENSION
     Route: 048
     Dates: start: 2005
  11. LEVOTHYROXIN [Concomitant]
     Active Substance: LEVOTHYROXINE
     Indication: HYPOTHYROIDISM
     Dosage: 700 MG, Q24H
     Route: 048
     Dates: start: 2008
  12. TRAMADOL. [Concomitant]
     Active Substance: TRAMADOL
     Indication: PSORIATIC ARTHROPATHY
     Dosage: 500 MG, TID
     Route: 048
     Dates: start: 201803

REACTIONS (1)
  - Erysipelas [Recovered/Resolved]

NARRATIVE: CASE EVENT DATE: 20180922
